FAERS Safety Report 9742379 (Version 2)
Quarter: 2014Q1

REPORT INFORMATION
  Report Type: Report from Study
  Country: JP (occurrence: JP)
  Receive Date: 20131210
  Receipt Date: 20140120
  Transmission Date: 20141002
  Serious: Yes (Death)
  Sender: FDA-Public Use
  Company Number: JP-009507513-1312JPN004261

PATIENT
  Age: 75 Year
  Sex: Female
  Weight: 30 kg

DRUGS (5)
  1. CANCIDAS FOR INTRAVENOUS DRIP INFUSION 50MG [Suspect]
     Indication: BRONCHOPULMONARY ASPERGILLOSIS
     Dosage: 50 MG, QD
     Route: 041
     Dates: start: 20131129, end: 20131202
  2. CANCIDAS FOR INTRAVENOUS DRIP INFUSION 70MG [Suspect]
     Indication: BRONCHOPULMONARY ASPERGILLOSIS
     Dosage: 70 MG, QD
     Route: 041
     Dates: start: 20131128, end: 20131128
  3. SOL MELCORT [Concomitant]
     Indication: PULMONARY ALVEOLAR HAEMORRHAGE
     Dosage: 500 MG, QD
     Route: 051
     Dates: start: 20131127, end: 20131129
  4. PREDONINE [Concomitant]
     Indication: PULMONARY ALVEOLAR HAEMORRHAGE
     Dosage: 30 MG, QD
     Route: 051
     Dates: start: 20131130, end: 20131202
  5. ENDOXAN [Concomitant]
     Indication: PULMONARY ALVEOLAR HAEMORRHAGE
     Dosage: 225 MG, QD
     Route: 051
     Dates: start: 20131201, end: 20131201

REACTIONS (1)
  - Pulmonary alveolar haemorrhage [Fatal]
